FAERS Safety Report 20797154 (Version 1)
Quarter: 2022Q2

REPORT INFORMATION
  Report Type: Spontaneous
  Country: IN (occurrence: IN)
  Receive Date: 20220506
  Receipt Date: 20220506
  Transmission Date: 20220721
  Serious: Yes (Hospitalization)
  Sender: FDA-Public Use
  Company Number: IN-PFIZER INC-2020334091

PATIENT
  Age: 56 Year
  Sex: Female
  Weight: 72.7 kg

DRUGS (11)
  1. PALBOCICLIB [Suspect]
     Active Substance: PALBOCICLIB
     Indication: Breast cancer metastatic
     Dosage: 125 MG, CYCLIC (ONCE DAILY 3 WEEKS ON AND 1 WEEK OFF)
     Route: 048
     Dates: start: 20191221
  2. PALBOCICLIB [Suspect]
     Active Substance: PALBOCICLIB
     Dosage: 125 MG, CYCLIC (ONCE DAILY 3 WEEKS ON AND 1 WEEK OFF)
     Route: 048
     Dates: start: 20210522
  3. LETROZOLE [Suspect]
     Active Substance: LETROZOLE
     Dosage: 2.5 MG, DAILY
     Dates: start: 201912
  4. ZOLEDRONIC ACID [Suspect]
     Active Substance: ZOLEDRONIC ACID
     Dosage: UNK
     Dates: start: 201912, end: 2020
  5. ESZOPICLONE [Suspect]
     Active Substance: ESZOPICLONE
     Dosage: UNK
     Dates: start: 202003
  6. ESZOPICLONE [Suspect]
     Active Substance: ESZOPICLONE
     Dosage: 120 MG
     Route: 058
     Dates: start: 20200914
  7. SOFTERON Z [Concomitant]
     Dosage: UNK, DAILY
     Route: 048
  8. CALCIUM CARBONATE\CHOLECALCIFEROL [Concomitant]
     Active Substance: CALCIUM CARBONATE\CHOLECALCIFEROL
     Dosage: 1 TABLET, DAILY
  9. SCLERON [Concomitant]
     Dosage: UNK, DAILY
  10. ZOLPIDEM TARTRATE [Concomitant]
     Active Substance: ZOLPIDEM TARTRATE
     Dosage: 5 MG, AS NEEDED
     Route: 048
  11. MINERALS\VITAMINS [Concomitant]
     Active Substance: MINERALS\VITAMINS
     Dosage: UNK, DAILY
     Route: 048

REACTIONS (8)
  - Blood pressure decreased [Unknown]
  - Hypertension [Unknown]
  - Malaise [Unknown]
  - Lymphoedema [Unknown]
  - Hypersensitivity [Unknown]
  - Aphthous ulcer [Unknown]
  - Pain [Unknown]
  - Neoplasm recurrence [Unknown]

NARRATIVE: CASE EVENT DATE: 20211122
